FAERS Safety Report 8031343-0 (Version None)
Quarter: 2012Q1

REPORT INFORMATION
  Report Type: 
  Country: None (occurrence: None)
  Receive Date: 20120109
  Receipt Date: 20120105
  Transmission Date: 20120608
  Serious: Yes (Hospitalization)
  Sender: FDA-Public Use
  Company Number: TR-GLAXOSMITHKLINE-B0774076A

PATIENT
  Age: 34 Year
  Sex: Female

DRUGS (1)
  1. PAROXETINE [Suspect]
     Indication: DEPRESSIVE SYMPTOM
     Dosage: 20MG PER DAY
     Route: 065

REACTIONS (4)
  - ASTHENIA [None]
  - HEPATOMEGALY [None]
  - HEPATIC ENZYME INCREASED [None]
  - HEPATITIS TOXIC [None]
